FAERS Safety Report 24217933 (Version 1)
Quarter: 2024Q3

REPORT INFORMATION
  Report Type: Spontaneous
  Country: US (occurrence: None)
  Receive Date: 20240815
  Receipt Date: 20240815
  Transmission Date: 20241016
  Serious: Yes (Disabling)
  Sender: Public
  Company Number: None

PATIENT
  Age: 41 Year
  Sex: Female
  Weight: 74.25 kg

DRUGS (11)
  1. SINGULAIR [Suspect]
     Active Substance: MONTELUKAST SODIUM
     Indication: Asthma
     Dosage: OTHER QUANTITY : 1 TABLET(S);?FREQUENCY : TWICE A DAY;?
     Route: 048
     Dates: start: 20240616, end: 20240724
  2. SINGULAIR [Suspect]
     Active Substance: MONTELUKAST SODIUM
     Indication: Mast cell activation syndrome
  3. GABAPENTIN [Concomitant]
     Active Substance: GABAPENTIN
  4. OXYCODONE [Concomitant]
     Active Substance: OXYCODONE
  5. METHOCARBAMOL [Concomitant]
     Active Substance: METHOCARBAMOL
  6. PROZAC [Concomitant]
     Active Substance: FLUOXETINE HYDROCHLORIDE
  7. TIZANIDINE [Concomitant]
     Active Substance: TIZANIDINE
  8. CLONAZEPAM [Concomitant]
     Active Substance: CLONAZEPAM
  9. Guanficine [Concomitant]
  10. Vitamin D3+K2 [Concomitant]
  11. Magnesium Threonate [Concomitant]

REACTIONS (21)
  - Psychomotor hyperactivity [None]
  - Feeling jittery [None]
  - Anxiety [None]
  - Nervousness [None]
  - Euphoric mood [None]
  - Agitation [None]
  - Hyperresponsive to stimuli [None]
  - Panic attack [None]
  - Hyperarousal [None]
  - Fatigue [None]
  - Tachycardia [None]
  - Morbid thoughts [None]
  - Mood swings [None]
  - Crying [None]
  - Aphasia [None]
  - Disturbance in attention [None]
  - Nausea [None]
  - Vomiting [None]
  - Diarrhoea [None]
  - Muscle spasms [None]
  - Neuropathy peripheral [None]

NARRATIVE: CASE EVENT DATE: 20240616
